FAERS Safety Report 9690437 (Version 2)
Quarter: 2013Q4

REPORT INFORMATION
  Report Type: Spontaneous
  Country: FR (occurrence: None)
  Receive Date: 20131113
  Receipt Date: 20131206
  Transmission Date: 20140711
  Serious: Yes (Hospitalization)
  Sender: FDA-Public Use
  Company Number: SYM-2013-12508

PATIENT
  Age: 75 Year
  Sex: Female

DRUGS (5)
  1. MONO-TILDIEM [Suspect]
     Indication: PRODUCT USED FOR UNKNOWN INDICATION
     Dates: end: 20130905
  2. AVLOCARDYL [Suspect]
     Dosage: 20 MG, DAILY
     Dates: end: 20130922
  3. MEDIATENSYL (URAPIDIL) (URAPIDIL) [Concomitant]
  4. AMLODIPINE (AMLODIPINE) (AMLODIPINE) [Concomitant]
  5. XEROQUEL (QUETIAPINE FUMARATE) (QUETIAPINE FUMARATE)? [Concomitant]

REACTIONS (23)
  - Electrocardiogram abnormal [None]
  - Sinus bradycardia [None]
  - Malaise [None]
  - Fall [None]
  - Dyskinesia [None]
  - Confusional state [None]
  - Respiratory distress [None]
  - Blood potassium increased [None]
  - Coma scale abnormal [None]
  - Rales [None]
  - Hypotension [None]
  - Sinus arrest [None]
  - Dilatation atrial [None]
  - Dilatation ventricular [None]
  - Dialysis [None]
  - Arrhythmia supraventricular [None]
  - Troponin increased [None]
  - Bacterial test positive [None]
  - Nodal rhythm [None]
  - Alveolar lung disease [None]
  - Conduction disorder [None]
  - Electrocardiogram repolarisation abnormality [None]
  - Cardiac arrest [None]
